FAERS Safety Report 14007551 (Version 1)
Quarter: 2017Q3

REPORT INFORMATION
  Report Type: Spontaneous
  Country: CA (occurrence: CA)
  Receive Date: 20170925
  Receipt Date: 20170925
  Transmission Date: 20171128
  Serious: Yes (Hospitalization, Other)
  Sender: FDA-Public Use
  Company Number: CA-TEVA-808601USA

PATIENT
  Age: 12 Day
  Sex: Male

DRUGS (8)
  1. SERTRALINE [Suspect]
     Active Substance: SERTRALINE HYDROCHLORIDE
     Route: 064
  2. ARIPIPRAZOLE. [Suspect]
     Active Substance: ARIPIPRAZOLE
     Route: 064
  3. LAMOTRIGINE. [Suspect]
     Active Substance: LAMOTRIGINE
     Route: 064
  4. FOLIC ACID. [Concomitant]
     Active Substance: FOLIC ACID
     Route: 064
  5. SERTRALINE [Suspect]
     Active Substance: SERTRALINE HYDROCHLORIDE
     Route: 063
  6. LAMOTRIGINE. [Suspect]
     Active Substance: LAMOTRIGINE
     Route: 063
  7. ARIPIPRAZOLE. [Suspect]
     Active Substance: ARIPIPRAZOLE
     Route: 063
  8. LEVOTHYROXINE SODIUM. [Concomitant]
     Active Substance: LEVOTHYROXINE SODIUM
     Route: 064

REACTIONS (10)
  - Disseminated intravascular coagulation [Recovered/Resolved]
  - Necrosis [Recovered/Resolved]
  - Peripheral artery thrombosis [Recovered/Resolved]
  - Dehydration [Recovered/Resolved]
  - Acute kidney injury [Recovered/Resolved]
  - Hypovolaemic shock [Recovered/Resolved]
  - Foetal exposure during pregnancy [Recovered/Resolved]
  - Hypernatraemia [Recovered/Resolved]
  - Gangrene [Recovered/Resolved]
  - Exposure during breast feeding [Recovered/Resolved]
